FAERS Safety Report 10331835 (Version 7)
Quarter: 2015Q2

REPORT INFORMATION
  Report Type: Report from Study
  Country: DE (occurrence: DE)
  Receive Date: 20140722
  Receipt Date: 20150429
  Transmission Date: 20150821
  Serious: Yes (Hospitalization)
  Sender: FDA-Public Use
  Company Number: DE-009507513-1306DEU009276

PATIENT
  Age: 53 Year
  Sex: Female
  Weight: 88 kg

DRUGS (14)
  1. PANTOPRAZOLE [Concomitant]
     Active Substance: PANTOPRAZOLE SODIUM
     Indication: PAIN
     Dosage: 40 MG, BID
     Route: 048
     Dates: start: 20130521, end: 20130527
  2. PEMBROLIZUMAB. [Suspect]
     Active Substance: PEMBROLIZUMAB
     Indication: MALIGNANT MELANOMA
     Dosage: UNK, Q3W
     Route: 042
     Dates: start: 20130528, end: 20130528
  3. METOPROLOL [Concomitant]
     Active Substance: METOPROLOL
     Indication: HYPERTENSION
     Dosage: 47.5 MG, BID; FORMULATION:PILL
     Route: 048
     Dates: start: 200711
  4. HYDROCHLOROTHIAZIDE. [Concomitant]
     Active Substance: HYDROCHLOROTHIAZIDE
     Indication: HYPERTENSION
     Dosage: 25 MG, QD
     Route: 048
     Dates: start: 200806
  5. IBUPROFEN. [Concomitant]
     Active Substance: IBUPROFEN
     Indication: METASTATIC PAIN
     Dosage: 600 MG, TID, FORMULATION: PILL
     Route: 048
     Dates: start: 20130521, end: 20130628
  6. LISINOPRIL. [Concomitant]
     Active Substance: LISINOPRIL
     Indication: HYPERTENSION
     Dosage: 2.5 MG, QD; FORMULATION: PILL
     Route: 048
     Dates: start: 201301, end: 20141017
  7. AMITRIPTYLINE HYDROCHLORIDE. [Concomitant]
     Active Substance: AMITRIPTYLINE HYDROCHLORIDE
     Indication: PAIN
     Dosage: 25 MG, QD, FORMULATION: PILL
     Route: 048
     Dates: start: 20130527, end: 20131004
  8. AMITRIPTYLINE HYDROCHLORIDE. [Concomitant]
     Active Substance: AMITRIPTYLINE HYDROCHLORIDE
     Indication: INSOMNIA
  9. L-THYROXIN [Concomitant]
     Active Substance: LEVOTHYROXINE SODIUM
     Indication: HYPOTHYROIDISM
     Dosage: 50 MICROGRAM, QD, FORMULATION: PILL
     Route: 048
     Dates: start: 20130527, end: 20130703
  10. MOVICOL [Concomitant]
     Active Substance: POLYETHYLENE GLYCOL 3350\POTASSIUM CHLORIDE\SODIUM BICARBONATE\SODIUM CHLORIDE
     Indication: CONSTIPATION PROPHYLAXIS
     Dosage: TOTAL DAILY DOSE: 3 PACKETS, PRN
     Route: 048
     Dates: start: 20130527
  11. VALORON (TILIDINE HYDROCHLORIDE) [Concomitant]
     Indication: PAIN
     Dosage: 50 MG, BID, FORMULATION: PILL
     Route: 048
     Dates: start: 20130527
  12. METOCLOPRAMIDE. [Concomitant]
     Active Substance: METOCLOPRAMIDE
     Indication: ABDOMINAL PAIN
     Dosage: TOTAL DAILY DOSE: 20 DROPS, PRN
     Route: 048
     Dates: start: 20130527
  13. TILIDIN COMP [Concomitant]
     Active Substance: NALOXONE HYDROCHLORIDE\TILIDINE HYDROCHLORIDE
     Indication: PAIN
     Dosage: 50 MG, QD, FORMULATION: PILL
     Route: 048
     Dates: start: 201211, end: 20130527
  14. TILIDIN [Concomitant]
     Active Substance: NALOXONE HYDROCHLORIDE\TILIDINE HYDROCHLORIDE
     Indication: PAIN
     Dosage: TOTAL DAILY DOSE: 80 DROPS, PRN
     Route: 048
     Dates: start: 20130527

REACTIONS (2)
  - Iritis [Recovered/Resolved]
  - Autoimmune hepatitis [Recovering/Resolving]

NARRATIVE: CASE EVENT DATE: 20130604
